FAERS Safety Report 9440292 (Version 1)
Quarter: 2013Q3

REPORT INFORMATION
  Report Type: Spontaneous
  Country: IT (occurrence: IT)
  Receive Date: 20130805
  Receipt Date: 20130805
  Transmission Date: 20140515
  Serious: Yes (Death)
  Sender: FDA-Public Use
  Company Number: IT-SPECTRUM PHARMACEUTICALS, INC.-13-Z-IT-00217

PATIENT
  Age: 65 Year
  Sex: 0

DRUGS (28)
  1. RITUXIMAB [Suspect]
     Indication: NON-HODGKIN^S LYMPHOMA
     Dosage: 4 G/M2, SINGLE
     Route: 065
  2. RITUXIMAB [Suspect]
     Dosage: 1.5 G/M2, BID DAYS 3-6
     Route: 065
  3. RITUXIMAB [Suspect]
     Dosage: UNK, UNKNOWN
     Route: 065
  4. ZEVALIN [Suspect]
     Indication: NON-HODGKIN^S LYMPHOMA
     Dosage: 1 DF, SINGLE
     Route: 065
  5. ZEVALIN [Suspect]
     Dosage: 1 DF, SINGLE
     Route: 065
  6. CYTARABINE [Suspect]
     Indication: NON-HODGKIN^S LYMPHOMA
     Dosage: UNK, UNKNOWN
     Route: 065
  7. CYTARABINE [Suspect]
     Dosage: UNK, UNKNOWN
     Route: 065
  8. CYTARABINE [Suspect]
     Dosage: UNK, UNKNOWN
     Route: 065
  9. CYTARABINE [Suspect]
     Dosage: 2 G/M2, BID DAYS 3-6
     Route: 065
  10. CYCLOPHOSPHAMIDE [Suspect]
     Indication: NON-HODGKIN^S LYMPHOMA
     Dosage: UNK, UNKNOWN
     Route: 065
  11. CYCLOPHOSPHAMIDE [Suspect]
     Dosage: UNK, UNKNOWN
     Route: 065
  12. CYCLOPHOSPHAMIDE [Suspect]
     Dosage: UNK, UNKNOWN
     Route: 065
  13. CYCLOPHOSPHAMIDE [Suspect]
     Dosage: 7 G/M2, UNK
     Route: 065
  14. DOXORUBICIN [Suspect]
     Indication: NON-HODGKIN^S LYMPHOMA
     Dosage: UNK, UNKNOWN
     Route: 065
  15. DOXORUBICIN [Suspect]
     Dosage: UNK, UNKNOWN
     Route: 065
  16. DOXORUBICIN [Suspect]
     Dosage: UNK, UNKNOWN
     Route: 065
  17. VINCRISTINE [Suspect]
     Indication: NON-HODGKIN^S LYMPHOMA
     Dosage: UNK, UNKNOWN
     Route: 065
  18. VINCRISTINE [Suspect]
     Dosage: UNK, UNKNOWN
     Route: 065
  19. VINCRISTINE [Suspect]
     Dosage: UNK, UNKNOWN
     Route: 065
  20. PREDNISONE [Suspect]
     Indication: NON-HODGKIN^S LYMPHOMA
     Dosage: UNK, UNKNOWN
     Route: 065
  21. PREDNISONE [Suspect]
     Dosage: UNK, UNKNOWN
     Route: 065
  22. PREDNISONE [Suspect]
     Dosage: UNK, UNKNOWN
     Route: 065
  23. DEXAMETHASONE [Suspect]
     Indication: NON-HODGKIN^S LYMPHOMA
     Dosage: UNK. UNKNOWN
     Route: 065
  24. DEXAMETHASONE [Suspect]
     Dosage: UNK. UNKNOWN
     Route: 065
  25. DEXAMETHASONE [Suspect]
     Dosage: UNK. UNKNOWN
     Route: 065
  26. CISPLATIN [Suspect]
     Indication: NON-HODGKIN^S LYMPHOMA
     Dosage: UNK, UNKNOWN
     Route: 065
  27. CISPLATIN [Suspect]
     Dosage: UNK, UNKNOWN
     Route: 065
  28. CISPLATIN [Suspect]
     Dosage: UNK, UNKNOWN
     Route: 065

REACTIONS (1)
  - Death [Fatal]
